FAERS Safety Report 17579740 (Version 1)
Quarter: 2020Q1

REPORT INFORMATION
  Report Type: Spontaneous
  Country: NL (occurrence: NL)
  Receive Date: 20200325
  Receipt Date: 20200325
  Transmission Date: 20200409
  Serious: Yes (Disabling)
  Sender: FDA-Public Use
  Company Number: NL-TEVA-2020-NL-1208842

PATIENT
  Age: 44 Year
  Sex: Male
  Weight: 73.5 kg

DRUGS (6)
  1. MAAGZUURREMMER OMEPRAZOL HTP (OMEPRAZOL) [Concomitant]
     Dosage: MAAGSAPRESISTENTE CAPSULE, 20 MG (MILLIGRAM)
  2. BRUFEN (IBUPROFEN) [Concomitant]
     Active Substance: IBUPROFEN
     Dosage: 3 X 600
  3. PARACETAMOL. [Concomitant]
     Dosage: 8X 500
  4. LYRICA (PREGABALINE) [Concomitant]
     Dosage: CAPSULE, 300 MG (MILLIGRAM)
  5. BUPRENORFINE/NALOXON [Concomitant]
     Indication: PAIN
     Dosage: 5X1
     Dates: start: 20200113
  6. OXYCODON [Suspect]
     Active Substance: OXYCODONE
     Route: 065

REACTIONS (2)
  - Insomnia [Not Recovered/Not Resolved]
  - Withdrawal syndrome [Not Recovered/Not Resolved]

NARRATIVE: CASE EVENT DATE: 20200227
